FAERS Safety Report 7002371-9 (Version None)
Quarter: 2010Q3

REPORT INFORMATION
  Report Type: 
  Country: None (occurrence: None)
  Receive Date: 20100920
  Receipt Date: 20090902
  Transmission Date: 20110219
  Serious: Yes (Hospitalization, Other)
  Sender: FDA-Public Use
  Company Number: US-ASTRAZENECA-2009SE11095

PATIENT
  Sex: Male

DRUGS (2)
  1. SEROQUEL [Suspect]
     Dosage: 150 TABLETS EACH OF 100 MG, TOTAL OF 15,000 MG
     Route: 048
  2. OXYCONTIN [Concomitant]

REACTIONS (3)
  - INTENTIONAL OVERDOSE [None]
  - SOMNOLENCE [None]
  - SUICIDE ATTEMPT [None]
